FAERS Safety Report 12524163 (Version 2)
Quarter: 2016Q3

REPORT INFORMATION
  Report Type: Spontaneous
  Country: US (occurrence: US)
  Receive Date: 20160704
  Receipt Date: 20160707
  Transmission Date: 20161109
  Serious: Yes (Death, Other)
  Sender: FDA-Public Use
  Company Number: US-SUN PHARMACEUTICAL INDUSTRIES LTD-2016US-118802

PATIENT
  Age: 60 Year
  Sex: Female

DRUGS (7)
  1. IRINOTECAN [Suspect]
     Active Substance: IRINOTECAN
     Indication: METASTASES TO EYE
     Dosage: UNK
     Route: 065
  2. CALCIUM FOLINAT [Suspect]
     Active Substance: LEUCOVORIN CALCIUM
     Indication: METASTASES TO EYE
     Dosage: UNK
     Route: 065
     Dates: start: 201012
  3. AVASTIN [Suspect]
     Active Substance: BEVACIZUMAB
     Indication: METASTASES TO EYE
     Dosage: TWO-WEEKLY CYCLES
     Route: 065
     Dates: start: 201012
  4. CETUXIMAB [Suspect]
     Active Substance: CETUXIMAB
     Indication: METASTASES TO EYE
     Dosage: UNK
     Route: 065
  5. RAMUCIRUMAB [Suspect]
     Active Substance: RAMUCIRUMAB
     Indication: METASTASES TO EYE
     Dosage: UNK
     Route: 065
  6. 5-FLUOROURACIL [Suspect]
     Active Substance: FLUOROURACIL
     Indication: METASTASES TO EYE
     Dosage: UNK
     Route: 042
     Dates: start: 201012
  7. OXALIPLATIN. [Suspect]
     Active Substance: OXALIPLATIN
     Indication: METASTASES TO EYE
     Dosage: TWO-WEEKLY CYCLES
     Route: 042
     Dates: start: 201012

REACTIONS (8)
  - Disease progression [Unknown]
  - Neutropenia [Unknown]
  - Skin toxicity [Unknown]
  - Hypersensitivity [Unknown]
  - Mental status changes [Unknown]
  - Disease progression [Unknown]
  - Death [Fatal]
  - Therapeutic response decreased [Unknown]

NARRATIVE: CASE EVENT DATE: 201108
